FAERS Safety Report 25146966 (Version 4)
Quarter: 2025Q2

REPORT INFORMATION
  Report Type: Spontaneous
  Country: BE (occurrence: BE)
  Receive Date: 20250401
  Receipt Date: 20250509
  Transmission Date: 20250716
  Serious: Yes (Hospitalization, Other)
  Sender: SANDOZ
  Company Number: BE-EUROCEPT-EC20250046

PATIENT
  Age: 53 Year
  Sex: Male

DRUGS (39)
  1. ACETAMINOPHEN [Suspect]
     Active Substance: ACETAMINOPHEN
     Indication: Product used for unknown indication
     Dosage: PARACETAMOL 1 G 3 TIMES DAILY
     Route: 065
  2. CLOZAPINE [Suspect]
     Active Substance: CLOZAPINE
     Indication: Product used for unknown indication
     Dosage: UNK
     Route: 065
  3. CLOZAPINE [Suspect]
     Active Substance: CLOZAPINE
     Indication: Psychotic disorder
     Dosage: CLOZAPINE 25 MG DAILY
     Route: 065
  4. CLOMIPRAMINE [Suspect]
     Active Substance: CLOMIPRAMINE
     Indication: Product used for unknown indication
     Dosage: 75 MG, QD
     Route: 065
  5. CLOMIPRAMINE [Suspect]
     Active Substance: CLOMIPRAMINE
     Route: 065
  6. CLONAZEPAM [Suspect]
     Active Substance: CLONAZEPAM
     Dosage: 25 MILLIGRAM, QD
     Route: 065
  7. CLONAZEPAM [Suspect]
     Active Substance: CLONAZEPAM
     Indication: Psychotic disorder
     Route: 065
  8. ESOMEPRAZOLE [Suspect]
     Active Substance: ESOMEPRAZOLE
     Indication: Product used for unknown indication
     Dosage: 20 MILLIGRAM, QD
     Route: 065
  9. ESOMEPRAZOLE [Suspect]
     Active Substance: ESOMEPRAZOLE
     Indication: Product used for unknown indication
  10. FLUTICASONE FUROATE [Suspect]
     Active Substance: FLUTICASONE FUROATE
     Indication: Product used for unknown indication
     Route: 065
  11. FLUTICASONE FUROATE\VILANTEROL TRIFENATATE [Suspect]
     Active Substance: FLUTICASONE FUROATE\VILANTEROL TRIFENATATE
     Indication: Product used for unknown indication
     Route: 065
  12. IBUPROFEN [Suspect]
     Active Substance: IBUPROFEN
     Indication: Product used for unknown indication
     Route: 065
  13. IBUPROFEN [Suspect]
     Active Substance: IBUPROFEN
     Route: 065
  14. ASCORBIC ACID\CYANOCOBALAMIN\FOLIC ACID\PYRIDOXINE HYDROCHLORIDE\RIBOF [Suspect]
     Active Substance: ASCORBIC ACID\CYANOCOBALAMIN\FOLIC ACID\PYRIDOXINE HYDROCHLORIDE\RIBOFLAVIN\SODIUM PANTOTHENATE\THIA
     Indication: Product used for unknown indication
     Route: 065
  15. LOPERAMIDE [Suspect]
     Active Substance: LOPERAMIDE
     Indication: Product used for unknown indication
     Dosage: LOPERAMIDE 2 MG UP TO 3 TIMES DAILY
     Route: 065
  16. LOPERAMIDE [Suspect]
     Active Substance: LOPERAMIDE
     Route: 065
  17. LORAZEPAM [Suspect]
     Active Substance: LORAZEPAM
     Indication: Agitation
     Dosage: LORAZEPAM 1 MG 3 TIMES DAILY
     Route: 065
  18. LORAZEPAM [Suspect]
     Active Substance: LORAZEPAM
     Route: 065
  19. NALTREXONE [Suspect]
     Active Substance: NALTREXONE
     Indication: Product used for unknown indication
     Dosage: 50 MG, QD
     Route: 065
  20. NALTREXONE [Suspect]
     Active Substance: NALTREXONE
     Route: 065
  21. ACETAMINOPHEN [Suspect]
     Active Substance: ACETAMINOPHEN
     Indication: Product used for unknown indication
     Dosage: PARACETAMOL 1 G 3 TIMES DAILY
     Route: 065
  22. ACETAMINOPHEN [Suspect]
     Active Substance: ACETAMINOPHEN
     Indication: Product used for unknown indication
  23. QUETIAPINE FUMARATE [Suspect]
     Active Substance: QUETIAPINE FUMARATE
     Dosage: QUETIAPINE 100 MG XR (EXTENDED RELEASE)
     Route: 065
  24. QUETIAPINE FUMARATE [Suspect]
     Active Substance: QUETIAPINE FUMARATE
     Dosage: 200 MG, EXTENDED RELEASE
     Route: 065
  25. QUETIAPINE FUMARATE [Suspect]
     Active Substance: QUETIAPINE FUMARATE
     Indication: Sleep disorder
     Dosage: 200 MILLIGRAM, QD
     Route: 065
  26. QUETIAPINE FUMARATE [Suspect]
     Active Substance: QUETIAPINE FUMARATE
     Dosage: 200 MILLIGRAM, QD
     Route: 065
  27. QUETIAPINE FUMARATE [Suspect]
     Active Substance: QUETIAPINE FUMARATE
     Dosage: QUETIAPINE 100 MG XR (EXTENDED  RELEASE) WAS INCREASED TO QUETIAPINE 200  MG IR (IMMEDIATE RELEASE)
     Route: 065
  28. QUETIAPINE FUMARATE [Suspect]
     Active Substance: QUETIAPINE FUMARATE
     Dosage: QUETIAPINE DOSE WAS HALVED TO 200 MG
     Route: 065
  29. QUETIAPINE FUMARATE [Suspect]
     Active Substance: QUETIAPINE FUMARATE
     Dosage: QUETIAPINE WAS FURTHER INCREASED TO 400  MG DAILY
     Route: 065
  30. TRAMADOL [Suspect]
     Active Substance: TRAMADOL
     Dosage: TRAMADOL 50 MG UP TO 4 TIMES DAILY
     Route: 065
  31. TRAMADOL [Suspect]
     Active Substance: TRAMADOL
     Indication: Pain
     Route: 065
  32. VITAMIN B [Suspect]
     Active Substance: VITAMIN B
     Indication: Product used for unknown indication
     Route: 065
  33. XYLOCAINE [Suspect]
     Active Substance: LIDOCAINE HYDROCHLORIDE
     Indication: Pruritus
     Dosage: 700 MILLIGRAM, QD
     Route: 062
  34. XYLOCAINE [Suspect]
     Active Substance: LIDOCAINE HYDROCHLORIDE
     Indication: Product used for unknown indication
  35. LIDOCAINE HYDROCHLORIDE [Concomitant]
     Active Substance: LIDOCAINE HYDROCHLORIDE
     Indication: Pruritus
     Dosage: 700 MG, QD
     Route: 062
  36. PERINDOPRIL [Concomitant]
     Active Substance: PERINDOPRIL
     Indication: Hypertension
     Dosage: 5 MG, QD
     Route: 065
  37. PERINDOPRIL [Concomitant]
     Active Substance: PERINDOPRIL
     Route: 065
  38. TAMSULOSIN [Concomitant]
     Active Substance: TAMSULOSIN
     Indication: Product used for unknown indication
     Dosage: TAMSULOSIN 0.4 MG 1 TIME DAILY
     Route: 065
  39. TAMSULOSIN [Concomitant]
     Active Substance: TAMSULOSIN
     Route: 065

REACTIONS (10)
  - Inappropriate antidiuretic hormone secretion [Recovering/Resolving]
  - Poisoning [Unknown]
  - Intellectual disability [Unknown]
  - Suicidal ideation [Unknown]
  - Off label use [Unknown]
  - Off label use [Not Recovered/Not Resolved]
  - Loss of personal independence in daily activities [Unknown]
  - Obsessive-compulsive disorder [Unknown]
  - Restlessness [Unknown]
  - Iron deficiency anaemia [Unknown]
